FAERS Safety Report 9492826 (Version 1)
Quarter: 2013Q3

REPORT INFORMATION
  Report Type: Spontaneous
  Country: ES (occurrence: ES)
  Receive Date: 20130830
  Receipt Date: 20130830
  Transmission Date: 20140515
  Serious: Yes (Death, Other)
  Sender: FDA-Public Use
  Company Number: ES-JNJFOC-20130816770

PATIENT
  Sex: 0

DRUGS (11)
  1. IBUPROFEN [Suspect]
     Indication: ANALGESIC THERAPY
  2. ACETAMINOPHEN [Suspect]
  3. ACETAMINOPHEN [Suspect]
     Indication: ANALGESIC THERAPY
  4. CARBAMAZEPINE [Suspect]
     Indication: EPILEPSY
  5. PHENYTOIN [Suspect]
     Indication: EPILEPSY
  6. LAMOTRIGINE [Suspect]
     Indication: EPILEPSY
  7. ALLOPURINOL [Suspect]
     Indication: GOUT
  8. DIPYRONE [Suspect]
     Indication: ANALGESIC THERAPY
  9. PIROXICAM [Suspect]
     Indication: ANALGESIC THERAPY
  10. COTRIMOXAZOLE [Suspect]
     Indication: PRODUCT USED FOR UNKNOWN INDICATION
  11. AMOXICILLIN [Suspect]
     Indication: PRODUCT USED FOR UNKNOWN INDICATION

REACTIONS (3)
  - Stevens-Johnson syndrome [Fatal]
  - Toxic epidermal necrolysis [Fatal]
  - Erythema multiforme [Unknown]
